FAERS Safety Report 25157019 (Version 4)
Quarter: 2025Q3

REPORT INFORMATION
  Report Type: Spontaneous
  Country: JP (occurrence: JP)
  Receive Date: 20250403
  Receipt Date: 20250702
  Transmission Date: 20251020
  Serious: Yes (Life-Threatening, Hospitalization, Other)
  Sender: BRISTOL-MYERS SQUIBB COMPANY
  Company Number: JP-ONO-2025JP005232

PATIENT
  Age: 75 Year
  Sex: Male
  Weight: 41 kg

DRUGS (10)
  1. OPDIVO [Suspect]
     Active Substance: NIVOLUMAB
     Indication: Gastric cancer
     Route: 041
     Dates: start: 20250120, end: 20250220
  2. ANAMORELIN HYDROCHLORIDE [Suspect]
     Active Substance: ANAMORELIN HYDROCHLORIDE
     Indication: Cachexia
     Dosage: 100 MG, EVERYDAY, UPON WAKING UP
     Route: 048
     Dates: start: 20250311, end: 20250312
  3. AMOXICILLIN\CLAVULANIC ACID [Suspect]
     Active Substance: AMOXICILLIN\CLAVULANIC ACID
     Indication: Pneumonia
     Route: 048
     Dates: start: 20250307, end: 20250312
  4. AMOXICILLIN [Suspect]
     Active Substance: AMOXICILLIN
     Indication: Pneumonia
     Route: 048
     Dates: start: 20250307, end: 20250312
  5. HYDROCORTISONE [Suspect]
     Active Substance: HYDROCORTISONE
     Indication: Adrenal insufficiency
     Route: 048
     Dates: start: 20250311, end: 20250312
  6. AMINO ACIDS\DEXTROSE\ELECTROLYTES NOS\VITAMINS [Suspect]
     Active Substance: AMINO ACIDS\DEXTROSE\ELECTROLYTES NOS\VITAMINS
     Indication: Product used for unknown indication
     Route: 042
     Dates: start: 20250311, end: 20250312
  7. AMLODIPINE BESYLATE [Concomitant]
     Active Substance: AMLODIPINE BESYLATE
     Indication: Hypertension
     Route: 048
     Dates: end: 20250307
  8. CARBOCYSTEINE [Concomitant]
     Active Substance: CARBOCYSTEINE
     Indication: Product used for unknown indication
     Route: 048
     Dates: start: 20250307, end: 20250312
  9. MAGNESIUM OXIDE [Concomitant]
     Active Substance: MAGNESIUM OXIDE
     Indication: Product used for unknown indication
     Route: 048
     Dates: start: 20250307, end: 20250312
  10. DEXTROMETHORPHAN HYDROBROMIDE [Concomitant]
     Active Substance: DEXTROMETHORPHAN HYDROBROMIDE
     Indication: Product used for unknown indication
     Route: 048
     Dates: start: 20250307, end: 20250312

REACTIONS (14)
  - Ventricular tachycardia [Recovered/Resolved]
  - Pneumonia [Recovering/Resolving]
  - Metabolic acidosis [Unknown]
  - Blood pressure decreased [Unknown]
  - Adrenocorticotropic hormone deficiency [Unknown]
  - Hyperglycaemia [Unknown]
  - Portal vein embolism [Unknown]
  - Hyperkalaemia [Unknown]
  - Adrenal insufficiency [Unknown]
  - Acidosis [Recovering/Resolving]
  - Pseudohyponatraemia [Unknown]
  - Emphysema [Unknown]
  - Medical device pain [Unknown]
  - Dyspnoea [Recovering/Resolving]

NARRATIVE: CASE EVENT DATE: 20250303
